FAERS Safety Report 4939787-8 (Version None)
Quarter: 2006Q1

REPORT INFORMATION
  Report Type: 
  Country: None (occurrence: None)
  Receive Date: 20060310
  Receipt Date: 20060227
  Transmission Date: 20060701
  Serious: Yes (Hospitalization, Other)
  Sender: FDA-Public Use
  Company Number: US-MERCK-0602USA05954

PATIENT
  Age: 70 Year
  Sex: Female
  Weight: 130 kg

DRUGS (8)
  1. VIOXX [Suspect]
     Indication: GOUT
     Route: 048
     Dates: start: 20030301
  2. LASIX [Concomitant]
     Route: 065
  3. ATENOLOL [Concomitant]
     Route: 065
  4. GLUCOPHAGE [Concomitant]
     Route: 065
  5. COUMADIN [Concomitant]
     Route: 065
  6. SYNTHROID [Concomitant]
     Route: 065
  7. NEURONTIN [Concomitant]
     Route: 065
  8. PRINIVIL [Concomitant]
     Route: 065

REACTIONS (5)
  - ADVERSE EVENT [None]
  - CARDIAC DISORDER [None]
  - CARDIAC FAILURE CONGESTIVE [None]
  - NEOPLASM [None]
  - RENAL FAILURE [None]
